FAERS Safety Report 20316978 (Version 1)
Quarter: 2022Q1

REPORT INFORMATION
  Report Type: Spontaneous
  Country: CH (occurrence: CH)
  Receive Date: 20220110
  Receipt Date: 20220110
  Transmission Date: 20220424
  Serious: Yes (Hospitalization)
  Sender: FDA-Public Use
  Company Number: CH-MYLANLABS-2022M1000605

PATIENT
  Age: 92 Year
  Sex: Male

DRUGS (8)
  1. TORSEMIDE [Suspect]
     Active Substance: TORSEMIDE
     Indication: Cardiac failure
     Dosage: 30 MILLIGRAM, QD (1X30MG /D)
  2. TORSEMIDE [Suspect]
     Active Substance: TORSEMIDE
     Dosage: 70 MILLIGRAM, QD
  3. APIXABAN [Concomitant]
     Active Substance: APIXABAN
     Dosage: 2.5 MILLIGRAM, BID (2X2.5MG/D)
  4. METOPROLOL [Concomitant]
     Active Substance: METOPROLOL
     Dosage: 25 MILLIGRAM, QD (1X25MG/D)
  5. METOPROLOL [Concomitant]
     Active Substance: METOPROLOL
     Dosage: 50 MILLIGRAM, QD
  6. SPIRONOLACTONE [Concomitant]
     Active Substance: SPIRONOLACTONE
     Dosage: 25 MILLIGRAM, QD (1X25MG/D)
  7. SACUBITRIL\VALSARTAN [Concomitant]
     Active Substance: SACUBITRIL\VALSARTAN
     Dosage: 25 MILLIGRAM, QD (1X25MG/D)
  8. SACUBITRIL\VALSARTAN [Concomitant]
     Active Substance: SACUBITRIL\VALSARTAN
     Dosage: 25 MILLIGRAM, BID

REACTIONS (7)
  - Jugular vein distension [Recovered/Resolved]
  - Breath sounds abnormal [Recovered/Resolved]
  - Liver palpable [Recovered/Resolved]
  - Dyspnoea [Unknown]
  - Oedema peripheral [Recovered/Resolved]
  - Weight decreased [Unknown]
  - Blood creatinine increased [Unknown]
